FAERS Safety Report 9464648 (Version 3)
Quarter: 2014Q1

REPORT INFORMATION
  Report Type: Spontaneous
  Country: US (occurrence: US)
  Receive Date: 20130819
  Receipt Date: 20140226
  Transmission Date: 20141002
  Serious: No
  Sender: FDA-Public Use
  Company Number: US-PFIZER INC-2013237779

PATIENT
  Age: 64 Year
  Sex: Female

DRUGS (11)
  1. ACCUPRIL [Suspect]
     Dosage: UNK
  2. FLUCONAZOLE [Suspect]
     Dosage: UNK
  3. NORVASC [Suspect]
     Dosage: UNK
  4. ISORDIL [Suspect]
     Dosage: UNK
  5. GABAPENTIN [Suspect]
     Dosage: UNK
  6. DEMEROL [Suspect]
     Dosage: UNK
  7. INFLUENZA VACCINE [Suspect]
     Indication: IMMUNISATION
     Dosage: 1 DF, SINGLE
  8. THIMEROSAL [Suspect]
     Dosage: UNK
  9. VASOTEC [Suspect]
     Dosage: UNK
  10. ZESTRIL [Suspect]
     Dosage: UNK
  11. CODEINE [Suspect]
     Dosage: UNK

REACTIONS (1)
  - Drug hypersensitivity [Unknown]
